FAERS Safety Report 20382216 (Version 4)
Quarter: 2022Q1

REPORT INFORMATION
  Report Type: Spontaneous
  Country: US (occurrence: US)
  Receive Date: 20220127
  Receipt Date: 20220222
  Transmission Date: 20220423
  Serious: Yes (Hospitalization, Other)
  Sender: FDA-Public Use
  Company Number: US-BIOGEN-2022BI01089674

PATIENT
  Sex: Female

DRUGS (4)
  1. TECFIDERA [Suspect]
     Active Substance: DIMETHYL FUMARATE
     Indication: Multiple sclerosis
     Route: 065
     Dates: start: 20150128
  2. TECFIDERA [Suspect]
     Active Substance: DIMETHYL FUMARATE
     Route: 065
     Dates: end: 202108
  3. TECFIDERA [Suspect]
     Active Substance: DIMETHYL FUMARATE
     Indication: Product used for unknown indication
     Route: 065
  4. TECFIDERA [Suspect]
     Active Substance: DIMETHYL FUMARATE
     Route: 065
     Dates: start: 202108

REACTIONS (15)
  - Urinary tract infection [Recovered/Resolved]
  - Mobility decreased [Unknown]
  - Fall [Recovered/Resolved]
  - Renal failure [Unknown]
  - Hepatic failure [Unknown]
  - Diabetes mellitus [Not Recovered/Not Resolved]
  - Cerebral disorder [Unknown]
  - Blood glucose abnormal [Unknown]
  - Hypoacusis [Unknown]
  - Nasal congestion [Unknown]
  - Sneezing [Unknown]
  - Chapped lips [Unknown]
  - SARS-CoV-2 test positive [Unknown]
  - Flushing [Recovered/Resolved]
  - Diarrhoea [Not Recovered/Not Resolved]
